FAERS Safety Report 6638623-1 (Version None)
Quarter: 2010Q1

REPORT INFORMATION
  Report Type: 
  Country: None (occurrence: None)
  Receive Date: 20100317
  Receipt Date: 20100309
  Transmission Date: 20100710
  Serious: Yes (Other)
  Sender: FDA-Public Use
  Company Number: US-SANOFI-AVENTIS-2010SA014006

PATIENT
  Age: 47 Year
  Sex: Female

DRUGS (4)
  1. LANTUS [Suspect]
     Route: 058
     Dates: start: 20070101
  2. APIDRA [Suspect]
     Dosage: APIDRA TAKEN ON SLIDING SCALE WITH MEALS
     Route: 058
     Dates: start: 20070101
  3. OPTICLICK [Suspect]
     Dates: start: 20070101
  4. OPTICLICK [Suspect]
     Dates: start: 20070101

REACTIONS (1)
  - CATARACT [None]
